FAERS Safety Report 19168306 (Version 1)
Quarter: 2021Q2

REPORT INFORMATION
  Report Type: Spontaneous
  Country: US (occurrence: US)
  Receive Date: 20210422
  Receipt Date: 20210422
  Transmission Date: 20210717
  Serious: Yes (Hospitalization, Other)
  Sender: FDA-Public Use
  Company Number: US-SA-2021SA132931

PATIENT
  Age: 70 Year
  Sex: Female

DRUGS (14)
  1. ZINC. [Concomitant]
     Active Substance: ZINC
  2. DUPIXENT [Suspect]
     Active Substance: DUPILUMAB
     Dosage: 30 MG, QOW
     Route: 058
     Dates: start: 202007
  3. KETOCONAZOLE. [Concomitant]
     Active Substance: KETOCONAZOLE
  4. CYCLOSPORINE. [Concomitant]
     Active Substance: CYCLOSPORINE
  5. LYSINE [Concomitant]
     Active Substance: LYSINE
  6. FAMOTIDINE. [Concomitant]
     Active Substance: FAMOTIDINE
  7. VITAMIN D3 [Concomitant]
     Active Substance: CHOLECALCIFEROL
  8. ATORVASTATIN CALCIUM. [Concomitant]
     Active Substance: ATORVASTATIN CALCIUM
  9. TACROLIMUS. [Concomitant]
     Active Substance: TACROLIMUS
  10. DUPIXENT [Suspect]
     Active Substance: DUPILUMAB
     Dosage: 300 MG, QOW
     Route: 058
     Dates: start: 202101
  11. AMIODARONE [Concomitant]
     Active Substance: AMIODARONE
  12. ELIQUIS [Concomitant]
     Active Substance: APIXABAN
  13. CITALOPRAM [Concomitant]
     Active Substance: CITALOPRAM HYDROBROMIDE
  14. DIPHENHYDRAMINE. [Concomitant]
     Active Substance: DIPHENHYDRAMINE

REACTIONS (3)
  - Cerebrovascular accident [Unknown]
  - Pruritus [Unknown]
  - Dry skin [Unknown]

NARRATIVE: CASE EVENT DATE: 202007
